FAERS Safety Report 18844477 (Version 1)
Quarter: 2021Q1

REPORT INFORMATION
  Report Type: Report from Study
  Country: US (occurrence: US)
  Receive Date: 20210203
  Receipt Date: 20210203
  Transmission Date: 20210419
  Serious: No
  Sender: FDA-Public Use
  Company Number: US-EXELIXIS-CABO-19025771

PATIENT
  Age: 64 Year
  Sex: Female

DRUGS (10)
  1. COMETRIQ [Suspect]
     Active Substance: CABOZANTINIB S-MALATE
     Indication: THYROID CANCER
     Dosage: 140 MG, QD (1 X 80 MG + 3 X 20 MG)
     Route: 048
     Dates: start: 20191116
  2. MELATONIN [Concomitant]
     Active Substance: MELATONIN
  3. BACTROBAN [Concomitant]
     Active Substance: MUPIROCIN\MUPIROCIN CALCIUM
  4. CITALOPRAM [Concomitant]
     Active Substance: CITALOPRAM HYDROBROMIDE
  5. COMETRIQ [Suspect]
     Active Substance: CABOZANTINIB S-MALATE
     Indication: METASTASIS
  6. LOPERAMIDE [Concomitant]
     Active Substance: LOPERAMIDE
  7. COMETRIQ [Suspect]
     Active Substance: CABOZANTINIB S-MALATE
     Indication: METASTASES TO LIVER
     Dosage: 140 MG, QD (1 X 80 MG + 3 X 20 MG)
     Route: 048
  8. LEVOTHYROXINE SODIUM. [Concomitant]
     Active Substance: LEVOTHYROXINE SODIUM
  9. ALBUTEROL. [Concomitant]
     Active Substance: ALBUTEROL
  10. SYMBICORT [Concomitant]
     Active Substance: BUDESONIDE\FORMOTEROL FUMARATE DIHYDRATE

REACTIONS (4)
  - Dry throat [Unknown]
  - Blood potassium decreased [Unknown]
  - Blister [Unknown]
  - Tongue discomfort [Unknown]

NARRATIVE: CASE EVENT DATE: 201911
